FAERS Safety Report 5181117-3 (Version None)
Quarter: 2006Q4

REPORT INFORMATION
  Report Type: 
  Country: None (occurrence: None)
  Receive Date: 20061220
  Receipt Date: 20061212
  Transmission Date: 20070319
  Serious: Yes (Hospitalization)
  Sender: FDA-Public Use
  Company Number: NL-ROCHE-474969

PATIENT
  Age: 61 Year
  Sex: Male

DRUGS (8)
  1. CAPECITABINE [Suspect]
     Dosage: NR. + DATE LAST CYCLE: 27 DECEMBER 2005
     Route: 048
     Dates: start: 20051128
  2. BEVACIZUMAB [Suspect]
     Dosage: NR. + DATE LAST CYCLE: 21 DECEMBER 2005
     Route: 042
     Dates: start: 20051128
  3. OXALIPLATIN [Suspect]
     Dosage: NR. + DATE LAST CYCLE: 21 DECEMBER 2005.
     Route: 042
     Dates: start: 20051128
  4. CETUXIMAB [Suspect]
     Dosage: NR. + DATE LAST CYCLE: 12 DECEMBER 2005.
     Route: 042
     Dates: start: 20051128
  5. ASCAL [Concomitant]
  6. METOPROLOL SUCCINATE [Concomitant]
     Dosage: DRUG REPORTED AS METOPROLOL RETARD.
  7. PRAVASTATIN [Concomitant]
  8. RAMIPRIL [Concomitant]

REACTIONS (3)
  - COLITIS ISCHAEMIC [None]
  - SEPSIS [None]
  - SEPTIC SHOCK [None]
